FAERS Safety Report 20870543 (Version 6)
Quarter: 2023Q2

REPORT INFORMATION
  Report Type: Report from Study
  Country: US (occurrence: US)
  Receive Date: 20220525
  Receipt Date: 20230617
  Transmission Date: 20230721
  Serious: No
  Sender: FDA-Public Use
  Company Number: US-NOVARTISTESTPH-NVSC2022US119909

PATIENT
  Age: 0 Year
  Sex: Female
  Weight: 10 kg

DRUGS (1)
  1. ZOLGENSMA [Suspect]
     Active Substance: ONASEMNOGENE ABEPARVOVEC-XIOI
     Indication: Spinal muscular atrophy
     Dosage: 5 MG, ONCE/SINGLE (5.5 ML VIAL X 2 AND 8.3 ML VIAL X 3)
     Route: 042
     Dates: start: 20220520, end: 20220520

REACTIONS (5)
  - Infusion site bruising [Unknown]
  - White blood cell count decreased [Unknown]
  - Vomiting [Unknown]
  - Troponin increased [Unknown]
  - Gait inability [Unknown]

NARRATIVE: CASE EVENT DATE: 20220523
